FAERS Safety Report 13570921 (Version 1)
Quarter: 2017Q2

REPORT INFORMATION
  Report Type: Other
  Country: ZA (occurrence: ZA)
  Receive Date: 20170523
  Receipt Date: 20170523
  Transmission Date: 20170830
  Serious: Yes (Other)
  Sender: FDA-Public Use
  Company Number: ZA-HETERO LABS LTD-2021083

PATIENT

DRUGS (1)
  1. EFAVIRENZ\ EMTRICITABINE\TENOFOVIR [Suspect]
     Active Substance: EFAVIRENZ\EMTRICITABINE\TENOFOVIR DISOPROXIL FUMARATE
     Indication: PRODUCT USED FOR UNKNOWN INDICATION
     Route: 065

REACTIONS (3)
  - Maternal drugs affecting foetus [None]
  - Exposure during pregnancy [Unknown]
  - Corneal opacity [Unknown]
